FAERS Safety Report 16351030 (Version 1)
Quarter: 2019Q2

REPORT INFORMATION
  Report Type: Spontaneous
  Country: US (occurrence: US)
  Receive Date: 20190524
  Receipt Date: 20190524
  Transmission Date: 20190711
  Serious: No
  Sender: FDA-Public Use
  Company Number: US-DRREDDYS-USA/USA/19/0110303

PATIENT
  Sex: Female
  Weight: 99 kg

DRUGS (2)
  1. TYLENOL [Concomitant]
     Active Substance: ACETAMINOPHEN
     Indication: PRODUCT USED FOR UNKNOWN INDICATION
  2. ZIPRASIDONE CAPSULES 20 MG, 40 MG, 60 MG AND 80 MG [Suspect]
     Active Substance: ZIPRASIDONE
     Indication: DEPRESSION

REACTIONS (1)
  - Breast enlargement [Not Recovered/Not Resolved]
